FAERS Safety Report 5632519-X (Version None)
Quarter: 2008Q1

REPORT INFORMATION
  Report Type: 
  Country: None (occurrence: None)
  Receive Date: 20080219
  Receipt Date: 20080207
  Transmission Date: 20080703
  Serious: Yes (Hospitalization)
  Sender: FDA-Public Use
  Company Number: T05-USA-05546-01

PATIENT
  Age: 88 Year
  Sex: Female
  Weight: 51.7101 kg

DRUGS (12)
  1. MEMANTINE HCL [Suspect]
     Indication: DEMENTIA ALZHEIMER'S TYPE
     Dosage: 28 MG QD PO
     Route: 048
     Dates: start: 20050907
  2. DONEPEZIL HCL [Concomitant]
  3. FOLIC ACID [Concomitant]
  4. MIRTAZAPINE [Concomitant]
  5. RISEDRONATE SODIUM [Concomitant]
  6. DOCUSATE SODIUM [Concomitant]
  7. RANITIDINE [Concomitant]
  8. TRIMETHOPRIM [Concomitant]
  9. DARVOCET-N 100 [Concomitant]
  10. VITAMIN CAP [Concomitant]
  11. CALCIUM [Concomitant]
  12. VITAMIN B-12 [Concomitant]

REACTIONS (21)
  - ASTHENIA [None]
  - BLOOD ALBUMIN DECREASED [None]
  - BLOOD AMYLASE INCREASED [None]
  - BLOOD PRESSURE SYSTOLIC INCREASED [None]
  - BRAIN NATRIURETIC PEPTIDE INCREASED [None]
  - CARDIAC FAILURE CONGESTIVE [None]
  - CAROTID ARTERY DISEASE [None]
  - CORONARY ARTERY INSUFFICIENCY [None]
  - DEMENTIA [None]
  - ELECTROLYTE IMBALANCE [None]
  - ENCEPHALOPATHY [None]
  - HYPOTENSION [None]
  - LIPASE INCREASED [None]
  - LUNG NEOPLASM [None]
  - NEUTROPHIL COUNT DECREASED [None]
  - NEUTROPHIL PERCENTAGE INCREASED [None]
  - PULMONARY EMBOLISM [None]
  - RESPIRATORY RATE INCREASED [None]
  - SYNCOPE VASOVAGAL [None]
  - URINARY TRACT INFECTION [None]
  - WHITE BLOOD CELL COUNT DECREASED [None]
